FAERS Safety Report 9252953 (Version 3)
Quarter: 2013Q2

REPORT INFORMATION
  Report Type: Report from Study
  Country: ES (occurrence: ES)
  Receive Date: 20130424
  Receipt Date: 20130510
  Transmission Date: 20140414
  Serious: Yes (Hospitalization)
  Sender: FDA-Public Use
  Company Number: ES-009507513-1304ESP011065

PATIENT
  Age: 58 Year
  Sex: Male
  Weight: 82 kg

DRUGS (10)
  1. TEMODAL [Suspect]
     Indication: MALIGNANT GLIOMA
     Dosage: 75 MG/M2, QD
     Route: 048
     Dates: start: 20130206
  2. MULTI-TARGETED GROWTH FACTOR RECEPTOR KINASE INHIBITOR (UNSPECIFIED) [Suspect]
     Indication: MALIGNANT GLIOMA
     Dosage: 150 MG, BID, FOR 14 DAYSAND OFF 14 DAYS EVERY 28 DAYS
     Route: 048
     Dates: start: 20130206
  3. OMEPRAZOLE [Concomitant]
     Dosage: UNK
     Dates: start: 2010
  4. ACETAMINOPHEN [Concomitant]
     Dosage: UNK
  5. DEXAMETHASONE [Concomitant]
     Dosage: UNK
  6. INSULIN ASPART [Concomitant]
     Dosage: UNK
  7. ENALAPRIL MALEATE [Concomitant]
     Dosage: UNK
     Dates: start: 2009
  8. DIPYRONE MAGNESIUM [Concomitant]
     Dosage: UNK
  9. LEVETIRACETAM [Concomitant]
     Dosage: UNK
     Dates: start: 2012
  10. VALPROATE SODIUM [Concomitant]
     Dosage: UNK
     Dates: start: 2005

REACTIONS (6)
  - Febrile neutropenia [Recovered/Resolved]
  - Pneumonia [Recovered/Resolved]
  - Septic shock [Recovered/Resolved]
  - Thrombocytopenia [Recovering/Resolving]
  - Blood potassium decreased [None]
  - Blood calcium decreased [None]
